FAERS Safety Report 24358624 (Version 1)
Quarter: 2024Q3

REPORT INFORMATION
  Report Type: Spontaneous
  Country: US (occurrence: None)
  Receive Date: 20240924
  Receipt Date: 20240924
  Transmission Date: 20241017
  Serious: No
  Sender: Public
  Company Number: None

PATIENT
  Age: 11 Year
  Sex: Male
  Weight: 21.15 kg

DRUGS (3)
  1. XYZAL [Suspect]
     Active Substance: LEVOCETIRIZINE DIHYDROCHLORIDE
     Indication: Hypersensitivity
     Dosage: DAILY ORAL
     Route: 048
     Dates: start: 20240922, end: 20240922
  2. XYZAL [Suspect]
     Active Substance: LEVOCETIRIZINE DIHYDROCHLORIDE
     Indication: Rhinorrhoea
  3. Gummy Vitamins [Concomitant]

REACTIONS (1)
  - Nightmare [None]

NARRATIVE: CASE EVENT DATE: 20240922
